FAERS Safety Report 24120682 (Version 1)
Quarter: 2024Q3

REPORT INFORMATION
  Report Type: Other
  Country: US (occurrence: US)
  Receive Date: 20240722
  Receipt Date: 20240722
  Transmission Date: 20241017
  Serious: Yes (Life-Threatening, Hospitalization, Other)
  Sender: VISTAPHARM
  Company Number: US-Vista Pharmaceuticals Inc.-2159422

PATIENT
  Age: 26 Year
  Sex: Female

DRUGS (1)
  1. SULFAMETHOXAZOLE\TRIMETHOPRIM [Suspect]
     Active Substance: SULFAMETHOXAZOLE\TRIMETHOPRIM
     Indication: Vaginal cyst
     Route: 065

REACTIONS (3)
  - Acute respiratory distress syndrome [Unknown]
  - Product use in unapproved indication [Unknown]
  - Acute lung injury [Unknown]
